FAERS Safety Report 7113608-X (Version None)
Quarter: 2010Q4

REPORT INFORMATION
  Report Type: 
  Country: None (occurrence: None)
  Receive Date: 20101119
  Receipt Date: 20101108
  Transmission Date: 20110411
  Serious: Yes (Other)
  Sender: FDA-Public Use
  Company Number: CO-ROCHE-739735

PATIENT
  Sex: Female

DRUGS (1)
  1. ACTEMRA [Suspect]
     Indication: RHEUMATOID ARTHRITIS
     Dosage: FORM: INFUSION, LAST INFUSION: 20 SEPTEMBER 2010.
     Route: 042
     Dates: start: 20100723

REACTIONS (1)
  - LEUKOPENIA [None]
